FAERS Safety Report 10184244 (Version 1)
Quarter: 2014Q2

REPORT INFORMATION
  Report Type: Spontaneous
  Country: US (occurrence: US)
  Receive Date: 20140520
  Receipt Date: 20140520
  Transmission Date: 20141212
  Serious: No
  Sender: FDA-Public Use
  Company Number: US-ASTRAZENECA-2013SE78159

PATIENT
  Age: 901 Month
  Sex: Female
  Weight: 86.2 kg

DRUGS (1)
  1. RHINOCORT [Suspect]
     Indication: DRY EYE
     Dosage: 1 SPRAY PER NOSTRIL DAILY
     Route: 045
     Dates: start: 201310

REACTIONS (6)
  - Malaise [Not Recovered/Not Resolved]
  - Nasal congestion [Not Recovered/Not Resolved]
  - Rhinorrhoea [Not Recovered/Not Resolved]
  - Intentional product misuse [Unknown]
  - Off label use [Not Recovered/Not Resolved]
  - Accidental exposure to product [Unknown]
